FAERS Safety Report 25482028 (Version 1)
Quarter: 2025Q2

REPORT INFORMATION
  Report Type: Spontaneous
  Country: US (occurrence: US)
  Receive Date: 20250626
  Receipt Date: 20250626
  Transmission Date: 20250716
  Serious: No
  Sender: Haleon PLC
  Company Number: US-MMM-76GV4XRA

PATIENT
  Age: 44 Year
  Sex: Male

DRUGS (2)
  1. ALLI [Suspect]
     Active Substance: ORLISTAT
     Indication: Weight decreased
     Dates: start: 20250410, end: 20250617
  2. ALLI [Suspect]
     Active Substance: ORLISTAT
     Dates: start: 20250410, end: 20250617

REACTIONS (3)
  - Abdominal distension [Recovered/Resolved]
  - Flatulence [Recovered/Resolved]
  - Drug ineffective [Unknown]

NARRATIVE: CASE EVENT DATE: 20250411
